FAERS Safety Report 17846597 (Version 11)
Quarter: 2021Q3

REPORT INFORMATION
  Report Type: Report from Study
  Country: IT (occurrence: IT)
  Receive Date: 20200601
  Receipt Date: 20210812
  Transmission Date: 20211014
  Serious: Yes (Hospitalization, Other)
  Sender: FDA-Public Use
  Company Number: IT-TAKEDA-2020TUS023840

PATIENT
  Age: 32 Year
  Sex: Male

DRUGS (3)
  1. VEDOLIZUMAB [Suspect]
     Active Substance: VEDOLIZUMAB
     Indication: CROHN^S DISEASE
     Dosage: 300 MILLIGRAM, Q4WEEKS
     Route: 042
     Dates: start: 20180115, end: 20181203
  2. SODIUM CHLORIDE. [Concomitant]
     Active Substance: SODIUM CHLORIDE
     Indication: SHORT-BOWEL SYNDROME
     Dosage: UNK UNK, BID
     Route: 048
     Dates: start: 20190226
  3. OLIMEL [Concomitant]
     Active Substance: AMINO ACIDS\DEXTROSE\SOYBEAN OIL
     Indication: SHORT-BOWEL SYNDROME
     Dosage: 2000 MILLILITER, QD
     Dates: start: 20190226, end: 20200523

REACTIONS (5)
  - Pleural effusion [Recovered/Resolved]
  - Hepatitis [Recovered/Resolved with Sequelae]
  - Hepatic cirrhosis [Recovered/Resolved with Sequelae]
  - Sepsis [Recovered/Resolved]
  - Peroneal nerve injury [Recovered/Resolved with Sequelae]

NARRATIVE: CASE EVENT DATE: 20200515
